FAERS Safety Report 15953887 (Version 1)
Quarter: 2019Q1

REPORT INFORMATION
  Report Type: Spontaneous
  Country: GB (occurrence: GB)
  Receive Date: 20190212
  Receipt Date: 20190212
  Transmission Date: 20190417
  Serious: Yes (Disabling)
  Sender: FDA-Public Use
  Company Number: GB-ALLERGAN-1905809US

PATIENT
  Age: 57 Year
  Sex: Female

DRUGS (1)
  1. KETOROLAC [Suspect]
     Active Substance: KETOROLAC\KETOROLAC TROMETHAMINE
     Indication: DACRYOCANALICULITIS
     Dosage: RIGHT EYE
     Route: 047
     Dates: start: 20181001, end: 20181102

REACTIONS (2)
  - Corneal scar [Not Recovered/Not Resolved]
  - Ophthalmic herpes simplex [Not Recovered/Not Resolved]
